FAERS Safety Report 5397248-9 (Version None)
Quarter: 2007Q3

REPORT INFORMATION
  Report Type: 
  Country: None (occurrence: None)
  Receive Date: 20070725
  Receipt Date: 20070713
  Transmission Date: 20080115
  Serious: Yes (Hospitalization, Other)
  Sender: FDA-Public Use
  Company Number: BR-PFIZER INC-2007058308

PATIENT
  Sex: Female
  Weight: 42 kg

DRUGS (3)
  1. DEPO-PROVERA SUSPENSION/INJ [Suspect]
     Indication: CONTRACEPTION
     Route: 030
     Dates: start: 20020101, end: 20020101
  2. DEPO-PROVERA SUSPENSION/INJ [Suspect]
     Indication: MENSTRUAL DISCOMFORT
  3. VENLAFAXIINE HCL [Suspect]

REACTIONS (7)
  - DEPRESSION [None]
  - IRRITABLE BOWEL SYNDROME [None]
  - METRORRHAGIA [None]
  - NAUSEA [None]
  - NEUTROPENIA [None]
  - PAIN [None]
  - THROMBOCYTOPENIA [None]
